FAERS Safety Report 7426299-5 (Version None)
Quarter: 2011Q2

REPORT INFORMATION
  Report Type: 
  Country: None (occurrence: None)
  Receive Date: 20110420
  Receipt Date: 20110411
  Transmission Date: 20111010
  Serious: Yes (Congenital Anomaly)
  Sender: FDA-Public Use
  Company Number: A0923419A

PATIENT
  Sex: Male
  Weight: 2.9 kg

DRUGS (7)
  1. REYATAZ [Suspect]
     Indication: ANTIVIRAL TREATMENT
     Dosage: 400MGD PER DAY
     Route: 064
     Dates: start: 20101102
  2. VIRACEPT [Suspect]
     Indication: ANTIVIRAL TREATMENT
     Dosage: 2500MGD PER DAY
     Route: 064
     Dates: start: 20100902, end: 20101029
  3. RETROVIR [Concomitant]
     Dosage: 1MGKH PER DAY
     Route: 064
     Dates: start: 20110127, end: 20110127
  4. RETROVIR [Concomitant]
     Indication: ANTIVIRAL TREATMENT
     Dosage: 2MGKH PER DAY
     Route: 064
     Dates: start: 20110127, end: 20110127
  5. COMBIVIR [Suspect]
     Indication: ANTIRETROVIRAL THERAPY
     Dosage: 2TAB PER DAY
     Route: 064
     Dates: start: 20100902, end: 20101029
  6. ZIAGEN [Suspect]
     Indication: ANTIVIRAL TREATMENT
     Dosage: 600MGD PER DAY
     Route: 064
     Dates: start: 20101102
  7. EPIVIR [Suspect]
     Indication: ANTIVIRAL TREATMENT
     Dosage: 300MGD PER DAY
     Route: 064
     Dates: start: 20101102

REACTIONS (5)
  - HYDRONEPHROSIS [None]
  - DRUG EXPOSURE DURING PREGNANCY [None]
  - VESICOURETERIC REFLUX [None]
  - CONGENITAL CYSTIC KIDNEY DISEASE [None]
  - OBSTRUCTIVE UROPATHY [None]
